FAERS Safety Report 6348348-8 (Version None)
Quarter: 2009Q3

REPORT INFORMATION
  Report Type: 
  Country: None (occurrence: None)
  Receive Date: 20090908
  Receipt Date: 20090820
  Transmission Date: 20100115
  Serious: Yes (Death)
  Sender: FDA-Public Use
  Company Number: 2009AL001599

PATIENT
  Age: 62 Year
  Sex: Male
  Weight: 109.7705 kg

DRUGS (12)
  1. DIGOXIN [Suspect]
     Dosage: 0.25MG, DAILY; PO
     Route: 048
     Dates: start: 20060801
  2. COUMADIN [Concomitant]
  3. SEROQUEL [Concomitant]
  4. FLOMAX [Concomitant]
  5. CORTEF [Concomitant]
  6. SOTALOL HYDROCHLORIDE [Concomitant]
  7. DDAVP [Concomitant]
  8. SYNTHROID [Concomitant]
  9. DESMOPRESSIN ACETATE [Concomitant]
  10. SORINE [Concomitant]
  11. LASIX [Concomitant]
  12. POTASSIUM CHLORIDE [Concomitant]

REACTIONS (15)
  - AMNESIA [None]
  - ARRHYTHMIA [None]
  - ARTERIOSCLEROSIS CORONARY ARTERY [None]
  - ATRIAL FIBRILLATION [None]
  - BLOOD PRESSURE INCREASED [None]
  - CHEST PAIN [None]
  - DEEP VEIN THROMBOSIS [None]
  - HAEMORRHAGE [None]
  - LOSS OF CONSCIOUSNESS [None]
  - MITRAL VALVE INCOMPETENCE [None]
  - MULTIPLE INJURIES [None]
  - OEDEMA [None]
  - PERICARDIAL EFFUSION [None]
  - ROAD TRAFFIC ACCIDENT [None]
  - WEIGHT INCREASED [None]
